FAERS Safety Report 6158273-3 (Version None)
Quarter: 2009Q2

REPORT INFORMATION
  Report Type: 
  Country: None (occurrence: None)
  Receive Date: 20090417
  Receipt Date: 20090415
  Transmission Date: 20091009
  Serious: Yes (Life-Threatening, Hospitalization)
  Sender: FDA-Public Use
  Company Number: GB-ASTRAZENECA-2009GB00893

PATIENT
  Age: 62 Year
  Sex: Female

DRUGS (8)
  1. LISINOPRIL [Suspect]
     Indication: HYPERTENSION
     Route: 048
     Dates: end: 20090323
  2. SULFASALAZINE [Suspect]
     Indication: ARTHRITIS
     Route: 048
     Dates: start: 20090101, end: 20090319
  3. AMIODARONE HCL [Concomitant]
     Indication: CARDIAC DISORDER
     Route: 048
  4. AMLODIPINE [Concomitant]
     Indication: HYPERTENSION
     Route: 048
     Dates: start: 20090310, end: 20090324
  5. ACETAMINOPHEN W/ CODEINE [Concomitant]
     Dosage: DOSE REPORTED AS 2 CI
     Route: 048
  6. EZETIMIBE [Concomitant]
     Route: 048
     Dates: end: 20090324
  7. GLUCOSAMINE [Concomitant]
     Indication: ARTHRITIS
     Route: 048
  8. LEVOTHYROXINE SODIUM [Concomitant]
     Indication: HYPOTENSION
     Route: 048

REACTIONS (2)
  - ANAPHYLACTIC REACTION [None]
  - LIVER FUNCTION TEST ABNORMAL [None]
